FAERS Safety Report 19496137 (Version 1)
Quarter: 2021Q3

REPORT INFORMATION
  Report Type: Spontaneous
  Country: US (occurrence: US)
  Receive Date: 20210706
  Receipt Date: 20210706
  Transmission Date: 20211014
  Serious: No
  Sender: FDA-Public Use
  Company Number: US-JNJFOC-20210666987

PATIENT
  Age: 72 Year

DRUGS (1)
  1. IMODIUM A?D [Suspect]
     Active Substance: LOPERAMIDE HYDROCHLORIDE
     Indication: IRRITABLE BOWEL SYNDROME
     Dosage: MINIMUM OF 4 EVERY DAY, SOMETIMES 6?8 IN 24 HOURS.
     Route: 065

REACTIONS (1)
  - Incorrect dose administered [Unknown]
